FAERS Safety Report 7624093-3 (Version None)
Quarter: 2011Q3

REPORT INFORMATION
  Report Type: 
  Country: None (occurrence: None)
  Receive Date: 20110720
  Receipt Date: 20110712
  Transmission Date: 20111222
  Serious: Yes (Other)
  Sender: FDA-Public Use
  Company Number: PHHY2011AR62938

PATIENT
  Sex: Male

DRUGS (2)
  1. TRILEPTAL [Suspect]
     Indication: EPILEPSY
     Dosage: 600 MG, DAILY
     Route: 048
  2. TRILEPTAL [Suspect]
     Dosage: 900 MG, DAILY

REACTIONS (2)
  - CONVULSION [None]
  - PETIT MAL EPILEPSY [None]
